FAERS Safety Report 22201372 (Version 1)
Quarter: 2023Q2

REPORT INFORMATION
  Report Type: Spontaneous
  Country: GB (occurrence: GB)
  Receive Date: 20230412
  Receipt Date: 20230412
  Transmission Date: 20230722
  Serious: Yes (Other)
  Sender: FDA-Public Use
  Company Number: None

PATIENT
  Age: 63 Year
  Sex: Female
  Weight: 88.4 kg

DRUGS (9)
  1. AMOXICILLIN [Suspect]
     Active Substance: AMOXICILLIN
     Indication: Nasopharyngitis
     Route: 048
  2. ACYCLOVIR [Concomitant]
     Active Substance: ACYCLOVIR
     Indication: Product used for unknown indication
     Route: 062
     Dates: start: 20230309
  3. COCOIS [Concomitant]
     Indication: Product used for unknown indication
     Dates: start: 20230308
  4. LOSARTAN. [Concomitant]
     Indication: Product used for unknown indication
     Dates: start: 20230303
  5. PREDNISOLONE [Concomitant]
     Active Substance: PREDNISOLONE
     Indication: Product used for unknown indication
     Route: 048
     Dates: start: 20230303
  6. PREDNISOLONE [Concomitant]
     Active Substance: PREDNISOLONE
     Dosage: ONE TABLET TO USE AS A MOUTH RINSE
     Route: 048
     Dates: start: 20230309
  7. PREDNISOLONE [Concomitant]
     Active Substance: PREDNISOLONE
     Route: 048
     Dates: start: 20230308
  8. VENTOLIN [Concomitant]
     Active Substance: ALBUTEROL SULFATE
     Indication: Product used for unknown indication
     Dosage: INHALE 2 DOSES
     Route: 055
     Dates: start: 20230223
  9. XYLOMETAZOLINE [Concomitant]
     Active Substance: XYLOMETAZOLINE
     Indication: Product used for unknown indication
     Route: 045
     Dates: start: 20230228, end: 20230307

REACTIONS (5)
  - Malaise [Unknown]
  - Pain [Unknown]
  - Chills [Unknown]
  - Feeling of body temperature change [Unknown]
  - Exfoliative rash [Recovered/Resolved]

NARRATIVE: CASE EVENT DATE: 20230303
